FAERS Safety Report 5622737-9 (Version None)
Quarter: 2008Q1

REPORT INFORMATION
  Report Type: 
  Country: None (occurrence: None)
  Receive Date: 20080212
  Receipt Date: 20080201
  Transmission Date: 20080703
  Serious: Yes (Hospitalization, Other)
  Sender: FDA-Public Use
  Company Number: IT-JNJFOC-20071201897

PATIENT
  Sex: Male
  Weight: 88 kg

DRUGS (1)
  1. INFLIXIMAB, RECUMBANT [Suspect]
     Indication: PSORIASIS
     Route: 042

REACTIONS (2)
  - LEGIONELLA INFECTION [None]
  - PNEUMONITIS [None]
